FAERS Safety Report 13276364 (Version 1)
Quarter: 2017Q1

REPORT INFORMATION
  Report Type: Report from Study
  Country: IE (occurrence: IE)
  Receive Date: 20170228
  Receipt Date: 20170228
  Transmission Date: 20170428
  Serious: Yes (Other)
  Sender: FDA-Public Use
  Company Number: PHFR2016IE002083

PATIENT
  Age: 26 Year
  Sex: Female

DRUGS (2)
  1. COSENTYX [Suspect]
     Active Substance: SECUKINUMAB
     Indication: PSORIATIC ARTHROPATHY
  2. COSENTYX [Suspect]
     Active Substance: SECUKINUMAB
     Indication: PSORIASIS
     Dosage: 300 MG
     Route: 058
     Dates: start: 20160222

REACTIONS (11)
  - Fatigue [Not Recovered/Not Resolved]
  - Erythema [Not Recovered/Not Resolved]
  - Gingival pain [Recovering/Resolving]
  - Hyperhidrosis [Not Recovered/Not Resolved]
  - Inflammation [Unknown]
  - Alopecia [Not Recovered/Not Resolved]
  - Joint swelling [Unknown]
  - Episcleritis [Recovering/Resolving]
  - Osteopenia [Unknown]
  - Nausea [Not Recovered/Not Resolved]
  - Scleritis [Recovering/Resolving]

NARRATIVE: CASE EVENT DATE: 20160223
